FAERS Safety Report 13805552 (Version 17)
Quarter: 2020Q3

REPORT INFORMATION
  Report Type: Report from Study
  Country: CA (occurrence: CA)
  Receive Date: 20170728
  Receipt Date: 20200730
  Transmission Date: 20201102
  Serious: Yes (Death, Other)
  Sender: FDA-Public Use
  Company Number: PHHY2016CA065812

PATIENT
  Age: 77 Year
  Sex: Female

DRUGS (7)
  1. PANCREATIC ENZYMES [Concomitant]
     Active Substance: UNSPECIFIED INGREDIENT
     Indication: PRODUCT USED FOR UNKNOWN INDICATION
     Dosage: 25 OT (2 CAPSULES PER DAY)
     Route: 065
  2. CODEINE [Concomitant]
     Active Substance: CODEINE
     Indication: PRODUCT USED FOR UNKNOWN INDICATION
     Dosage: 30 MG, UNK
     Route: 065
  3. PANTO [Concomitant]
     Indication: PRODUCT USED FOR UNKNOWN INDICATION
     Dosage: 40 MG, BID
     Route: 065
  4. SANDOSTATIN LAR DEPOT [Suspect]
     Active Substance: OCTREOTIDE ACETATE
     Indication: NEUROENDOCRINE TUMOUR
     Dosage: 30 MG, Q4W
     Route: 030
     Dates: start: 20200504, end: 20200602
  5. SANDOSTATIN LAR DEPOT [Suspect]
     Active Substance: OCTREOTIDE ACETATE
  6. AFINITOR [Suspect]
     Active Substance: EVEROLIMUS
     Indication: BLOOD PRESSURE MEASUREMENT
     Dosage: 10 MG, QD
     Route: 048
     Dates: start: 20190327, end: 20190507
  7. SANDOSTATIN LAR DEPOT [Suspect]
     Active Substance: OCTREOTIDE ACETATE
     Indication: CARCINOID SYNDROME
     Dosage: 30 MG, QMO (EVERY 4 WEEKS)
     Route: 030
     Dates: start: 20160412

REACTIONS (28)
  - Death [Fatal]
  - Blood pressure systolic increased [Unknown]
  - Chapped lips [Unknown]
  - Dry mouth [Unknown]
  - Oedema [Unknown]
  - Joint swelling [Unknown]
  - Dry skin [Unknown]
  - Rash [Recovered/Resolved]
  - Lip swelling [Recovered/Resolved]
  - Injection site oedema [Unknown]
  - Lip dry [Unknown]
  - Pruritus [Recovered/Resolved]
  - Injection site haemorrhage [Recovered/Resolved]
  - Dehydration [Unknown]
  - Fatigue [Unknown]
  - Product use in unapproved indication [Unknown]
  - Product dose omission issue [Unknown]
  - Pain in extremity [Unknown]
  - Swelling [Recovered/Resolved]
  - Drug hypersensitivity [Recovered/Resolved]
  - Blood pressure diastolic decreased [Unknown]
  - Weight decreased [Unknown]
  - Oedema peripheral [Unknown]
  - Pallor [Unknown]
  - Diarrhoea [Unknown]
  - Diarrhoea haemorrhagic [Unknown]
  - Blister [Unknown]
  - Flatulence [Unknown]

NARRATIVE: CASE EVENT DATE: 2016
